FAERS Safety Report 24910720 (Version 4)
Quarter: 2025Q1

REPORT INFORMATION
  Report Type: Spontaneous
  Country: US (occurrence: US)
  Receive Date: 20250131
  Receipt Date: 20250228
  Transmission Date: 20250409
  Serious: Yes (Death, Other)
  Sender: PFIZER
  Company Number: US-PFIZER INC-202500020542

PATIENT
  Age: 96 Year
  Sex: Female
  Weight: 54.422 kg

DRUGS (9)
  1. DIAZEPAM [Suspect]
     Active Substance: DIAZEPAM
     Route: 048
     Dates: start: 20230901
  2. XANAX [Suspect]
     Active Substance: ALPRAZOLAM
     Indication: Feeling of relaxation
     Dates: start: 20230901, end: 20231029
  3. AMBIEN [Suspect]
     Active Substance: ZOLPIDEM TARTRATE
     Indication: Sleep disorder
     Dates: start: 202309
  4. AMBIEN [Suspect]
     Active Substance: ZOLPIDEM TARTRATE
     Indication: Feeling of relaxation
  5. VALIUM [Suspect]
     Active Substance: DIAZEPAM
     Indication: Feeling of relaxation
  6. METHOCARBAMOL [Suspect]
     Active Substance: METHOCARBAMOL
     Indication: Feeling of relaxation
  7. MELATONIN [Suspect]
     Active Substance: MELATONIN
  8. COUMADIN [Concomitant]
     Active Substance: WARFARIN SODIUM
     Dates: start: 202309
  9. COUMADIN [Concomitant]
     Active Substance: WARFARIN SODIUM
     Dates: end: 202310

REACTIONS (2)
  - Death [Fatal]
  - Overdose [Fatal]

NARRATIVE: CASE EVENT DATE: 20231029
